FAERS Safety Report 9390327 (Version 1)
Quarter: 2013Q3

REPORT INFORMATION
  Report Type: Report from Study
  Country: BE (occurrence: BE)
  Receive Date: 20130709
  Receipt Date: 20130709
  Transmission Date: 20140515
  Serious: Yes (Death, Other)
  Sender: FDA-Public Use
  Company Number: BE-ROCHE-1246120

PATIENT
  Sex: 0

DRUGS (2)
  1. AVASTIN [Suspect]
     Indication: GLIOBLASTOMA
     Route: 065
     Dates: start: 20120706
  2. METHYLPREDNISOLONE [Suspect]
     Indication: GLIOBLASTOMA
     Route: 065

REACTIONS (2)
  - Headache [Unknown]
  - Death [Fatal]
